FAERS Safety Report 10723947 (Version 2)
Quarter: 2015Q1

REPORT INFORMATION
  Report Type: Report from Study
  Country: MX (occurrence: MX)
  Receive Date: 20150120
  Receipt Date: 20150202
  Transmission Date: 20150721
  Serious: Yes (Disabling, Other)
  Sender: FDA-Public Use
  Company Number: PHHY2015MX006666

PATIENT
  Age: 81 Year
  Sex: Male

DRUGS (1)
  1. ONBREZ BREEZHALER [Suspect]
     Active Substance: INDACATEROL
     Indication: EMPHYSEMA
     Dosage: 150 UG, QD
     Route: 065
     Dates: start: 201104

REACTIONS (8)
  - Mastication disorder [Not Recovered/Not Resolved]
  - Gait disturbance [Not Recovered/Not Resolved]
  - Diet refusal [Not Recovered/Not Resolved]
  - Abasia [Not Recovered/Not Resolved]
  - Thinking abnormal [Not Recovered/Not Resolved]
  - Emphysema [Unknown]
  - Nervous system disorder [Unknown]
  - Disease progression [Unknown]

NARRATIVE: CASE EVENT DATE: 201412
